FAERS Safety Report 11799075 (Version 2)
Quarter: 2016Q1

REPORT INFORMATION
  Report Type: Report from Study
  Country: US (occurrence: US)
  Receive Date: 20151203
  Receipt Date: 20160125
  Transmission Date: 20160525
  Serious: No
  Sender: FDA-Public Use
  Company Number: US-AMGEN-USASL2015119950

PATIENT
  Age: 66 Year
  Sex: Female

DRUGS (2)
  1. REPATHA [Suspect]
     Active Substance: EVOLOCUMAB
     Indication: TYPE IIA HYPERLIPIDAEMIA
  2. REPATHA [Suspect]
     Active Substance: EVOLOCUMAB
     Indication: HYPERCHOLESTEROLAEMIA
     Dosage: 140 MG, Q2WK
     Route: 065
     Dates: start: 20151008, end: 20151110

REACTIONS (8)
  - Hypersensitivity [Unknown]
  - Nausea [Unknown]
  - Influenza like illness [Unknown]
  - Myalgia [Unknown]
  - Dizziness [Unknown]
  - Rash [Unknown]
  - Condition aggravated [Unknown]
  - Vomiting [Unknown]

NARRATIVE: CASE EVENT DATE: 2015
